FAERS Safety Report 10639635 (Version 3)
Quarter: 2014Q4

REPORT INFORMATION
  Report Type: Spontaneous
  Country: TW (occurrence: TW)
  Receive Date: 20141209
  Receipt Date: 20141223
  Transmission Date: 20150529
  Serious: Yes (Other)
  Sender: FDA-Public Use
  Company Number: TW-RANBAXY-2014RR-89060

PATIENT
  Sex: Female

DRUGS (5)
  1. QUETIAPINE [Concomitant]
     Active Substance: QUETIAPINE
     Indication: PRODUCT USED FOR UNKNOWN INDICATION
     Dosage: 50 MG, AT BEDTIME
     Route: 065
  2. FLURAZEPAM [Concomitant]
     Active Substance: FLURAZEPAM\FLURAZEPAM HYDROCHLORIDE
     Indication: PRODUCT USED FOR UNKNOWN INDICATION
     Dosage: 60 MG, AT BEDTIME
     Route: 065
  3. STILNOX [Suspect]
     Active Substance: ZOLPIDEM TARTRATE
     Indication: MAJOR DEPRESSION
     Dosage: 200-400 MG/DAY
     Route: 065
  4. TRAZODONE [Concomitant]
     Active Substance: TRAZODONE HYDROCHLORIDE
     Indication: PRODUCT USED FOR UNKNOWN INDICATION
     Dosage: 100 MG, AT BEDTIME
     Route: 065
  5. STILNOX [Suspect]
     Active Substance: ZOLPIDEM TARTRATE
     Indication: MAJOR DEPRESSION
     Dosage: UNK
     Route: 065

REACTIONS (2)
  - Drug dependence [Recovering/Resolving]
  - Withdrawal syndrome [Recovering/Resolving]
